FAERS Safety Report 6419164-3 (Version None)
Quarter: 2009Q4

REPORT INFORMATION
  Report Type: 
  Country: None (occurrence: None)
  Receive Date: 20091029
  Receipt Date: 20091015
  Transmission Date: 20100525
  Serious: No
  Sender: FDA-Public Use
  Company Number: PHHY2009JP31991

PATIENT
  Sex: Male

DRUGS (1)
  1. RESCULA [Suspect]

REACTIONS (1)
  - HEART RATE DECREASED [None]
